FAERS Safety Report 11650515 (Version 2)
Quarter: 2016Q1

REPORT INFORMATION
  Report Type: Spontaneous
  Country: FI (occurrence: FI)
  Receive Date: 20151021
  Receipt Date: 20160202
  Transmission Date: 20160525
  Serious: Yes (Death, Hospitalization, Other)
  Sender: FDA-Public Use
  Company Number: FI-SHIRE-FI201512906

PATIENT
  Age: 71 Year
  Sex: Male

DRUGS (5)
  1. XAGRID [Suspect]
     Active Substance: ANAGRELIDE HYDROCHLORIDE
     Dosage: 1.0 MG (TWO X 0.5 MG), UNKNOWN (PER DAY)
     Route: 048
     Dates: start: 20150811, end: 201508
  2. HYDROXYUREA. [Concomitant]
     Active Substance: HYDROXYUREA
     Indication: ESSENTIAL THROMBOCYTHAEMIA
     Dosage: 2500 MG (FIVE X 500 MG), UNKNOWN (PER WEEK)
     Route: 065
     Dates: start: 2015, end: 2015
  3. HYDROXYUREA. [Concomitant]
     Active Substance: HYDROXYUREA
     Dosage: 1000 MG, UNKNOWN
     Route: 065
     Dates: start: 2015
  4. XAGRID [Suspect]
     Active Substance: ANAGRELIDE HYDROCHLORIDE
     Dosage: 2 MG, UNKNOWN
     Route: 048
     Dates: start: 201508, end: 20150820
  5. XAGRID [Suspect]
     Active Substance: ANAGRELIDE HYDROCHLORIDE
     Indication: ESSENTIAL THROMBOCYTHAEMIA
     Dosage: 1.0 MG (TWO X 0.5 MG), UNKNOWN (PER DAY)
     Route: 048
     Dates: start: 20150821, end: 2015

REACTIONS (4)
  - Death [Fatal]
  - Infection [Unknown]
  - Pulmonary oedema [Unknown]
  - Pericardial effusion [Unknown]

NARRATIVE: CASE EVENT DATE: 20150922
